FAERS Safety Report 9361446 (Version 1)
Quarter: 2013Q2

REPORT INFORMATION
  Report Type: Spontaneous
  Country: US (occurrence: US)
  Receive Date: 20130621
  Receipt Date: 20130621
  Transmission Date: 20140414
  Serious: Yes (Death)
  Sender: FDA-Public Use
  Company Number: US-B.I. PHARMACEUTICALS,INC./RIDGEFIELD-2013-BI-17476BP

PATIENT
  Age: 56 Year
  Sex: Male

DRUGS (2)
  1. COMBIVENT [Suspect]
     Dates: start: 20130408
  2. DURAGESIC [Concomitant]

REACTIONS (1)
  - Death [Fatal]
